FAERS Safety Report 10649005 (Version 2)
Quarter: 2014Q4

REPORT INFORMATION
  Report Type: Report from Study
  Country: US (occurrence: US)
  Receive Date: 20141212
  Receipt Date: 20141222
  Transmission Date: 20150529
  Serious: Yes (Other)
  Sender: FDA-Public Use
  Company Number: US-JNJFOC-20141106264

PATIENT
  Age: 33 Year
  Sex: Female
  Weight: 47.17 kg

DRUGS (8)
  1. ACETAMINOPHEN. [Suspect]
     Active Substance: ACETAMINOPHEN
     Indication: HEADACHE
     Route: 048
     Dates: start: 20141011, end: 20141012
  2. STELARA [Suspect]
     Active Substance: USTEKINUMAB
     Indication: CROHN^S DISEASE
     Route: 058
     Dates: start: 20140201, end: 20141030
  3. FOLIC ACID. [Concomitant]
     Active Substance: FOLIC ACID
     Indication: PRODUCT USED FOR UNKNOWN INDICATION
     Dosage: EVERY OTHER DAY
     Route: 048
     Dates: start: 20140801
  4. FEMARA [Concomitant]
     Active Substance: LETROZOLE
     Indication: MENSTRUAL DISORDER
     Route: 048
     Dates: start: 20140701, end: 20140705
  5. IMURAN [Suspect]
     Active Substance: AZATHIOPRINE
     Indication: CROHN^S DISEASE
     Route: 048
     Dates: start: 20140723
  6. COLACE [Suspect]
     Active Substance: DOCUSATE SODIUM
     Indication: CROHN^S DISEASE
     Route: 048
     Dates: start: 20140723
  7. FLU VACCINE [Suspect]
     Active Substance: INFLUENZA VIRUS VACCINE
     Indication: PRODUCT USED FOR UNKNOWN INDICATION
     Route: 050
     Dates: start: 20141010, end: 20141010
  8. DOCOSAHEXANOIC ACID [Concomitant]
     Indication: PRODUCT USED FOR UNKNOWN INDICATION
     Route: 048
     Dates: start: 20140901

REACTIONS (4)
  - Vaginal haemorrhage [Unknown]
  - Thrombosis [Unknown]
  - Product use issue [Unknown]
  - Exposure during pregnancy [Not Recovered/Not Resolved]

NARRATIVE: CASE EVENT DATE: 2014
